FAERS Safety Report 9937028 (Version 1)
Quarter: 2014Q1

REPORT INFORMATION
  Report Type: Spontaneous
  Country: US (occurrence: None)
  Receive Date: 20140122
  Receipt Date: 20140122
  Transmission Date: 20141002
  Serious: No
  Sender: FDA-Public Use
  Company Number: AP356-00259-SPO-US

PATIENT
  Age: 76 Year
  Sex: Male
  Weight: 150.4 kg

DRUGS (7)
  1. BELVIQ (LORCASERIN HYDROCHLORIDE) [Suspect]
     Indication: WEIGHT DECREASED
     Route: 048
     Dates: start: 20131024, end: 20131113
  2. LISINOPRIL (LISINOPRIL) [Concomitant]
  3. NORVASC (AMLODIPINE BESILATE) [Concomitant]
  4. CARVEDILOL (CARVEDILOL) [Concomitant]
  5. GLIMEPIRIDE (GLIMEPIRIDE) [Concomitant]
  6. OMEPRAZOLE (OMEPRAZOLE) [Concomitant]
  7. ASPIRIN (ACETYLSALICYLIC ACID) [Concomitant]

REACTIONS (2)
  - Weight increased [None]
  - Oedema peripheral [None]
